APPROVED DRUG PRODUCT: PHENTERMINE HYDROCHLORIDE
Active Ingredient: PHENTERMINE HYDROCHLORIDE
Strength: 37.5MG
Dosage Form/Route: CAPSULE;ORAL
Application: A201961 | Product #001
Applicant: LANNETT CO INC
Approved: Jul 20, 2011 | RLD: No | RS: No | Type: DISCN